FAERS Safety Report 6599346-0 (Version None)
Quarter: 2010Q1

REPORT INFORMATION
  Report Type: 
  Country: None (occurrence: None)
  Receive Date: 20100224
  Receipt Date: 20100217
  Transmission Date: 20100710
  Serious: Yes (Death, Other)
  Sender: FDA-Public Use
  Company Number: US-CELGENEUS-163-21880-09110777

PATIENT
  Sex: Female

DRUGS (3)
  1. REVLIMID [Suspect]
     Indication: MULTIPLE MYELOMA
     Route: 048
     Dates: start: 20080417, end: 20091026
  2. ZOMETA [Suspect]
     Indication: DRUG USE FOR UNKNOWN INDICATION
     Route: 065
     Dates: start: 20050701, end: 20060101
  3. ZOMETA [Suspect]
     Route: 065
     Dates: start: 20091005

REACTIONS (10)
  - DECREASED APPETITE [None]
  - DEPRESSION [None]
  - ENDOMETRIAL SARCOMA [None]
  - FATIGUE [None]
  - FEELING ABNORMAL [None]
  - MULTIPLE MYELOMA [None]
  - NAUSEA [None]
  - PLATELET COUNT DECREASED [None]
  - RENAL FAILURE [None]
  - WHITE BLOOD CELL COUNT DECREASED [None]
